FAERS Safety Report 9630843 (Version 2)
Quarter: 2014Q1

REPORT INFORMATION
  Report Type: Spontaneous
  Country: US (occurrence: US)
  Receive Date: 20131018
  Receipt Date: 20140102
  Transmission Date: 20141002
  Serious: Yes (Other)
  Sender: FDA-Public Use
  Company Number: US-JNJFOC-20131006282

PATIENT
  Age: 94 Year
  Sex: Male
  Weight: 58.06 kg

DRUGS (4)
  1. XARELTO [Suspect]
     Indication: CEREBROVASCULAR ACCIDENT PROPHYLAXIS
     Route: 048
     Dates: start: 20130913
  2. XARELTO [Suspect]
     Indication: ATRIAL FIBRILLATION
     Route: 048
     Dates: start: 20130913
  3. VITAMIN C [Concomitant]
     Route: 065
  4. VITAMIN B12 [Concomitant]
     Route: 065

REACTIONS (4)
  - Arrhythmia [Unknown]
  - Adverse event [Recovered/Resolved]
  - Product size issue [Unknown]
  - Incorrect dose administered [Unknown]
